FAERS Safety Report 16314113 (Version 1)
Quarter: 2019Q2

REPORT INFORMATION
  Report Type: Spontaneous
  Country: US (occurrence: US)
  Receive Date: 20190514
  Receipt Date: 20190514
  Transmission Date: 20190711
  Serious: Yes (Hospitalization)
  Sender: FDA-Public Use
  Company Number: None

PATIENT
  Sex: Male

DRUGS (3)
  1. CLOBETASOL OINTMENT 0.05% [Concomitant]
     Dates: start: 20190422
  2. ONDANSETRON 4MG ODT [Concomitant]
     Dates: start: 20190511
  3. HUMIRA [Suspect]
     Active Substance: ADALIMUMAB
     Indication: PSORIASIS
     Dosage: ?          OTHER FREQUENCY:EVERY OTHER WEEK;?
     Route: 058

REACTIONS (5)
  - Contusion [None]
  - Nausea [None]
  - Vomiting [None]
  - Dehydration [None]
  - Diarrhoea [None]
